FAERS Safety Report 5168002-8 (Version None)
Quarter: 2006Q4

REPORT INFORMATION
  Report Type: 
  Country: None (occurrence: None)
  Receive Date: 20061208
  Receipt Date: 20060117
  Transmission Date: 20070319
  Serious: No
  Sender: FDA-Public Use
  Company Number: US-GLAXOSMITHKLINE-A0589650A

PATIENT
  Age: 71 Year
  Sex: Female

DRUGS (1)
  1. AVANDAMET [Suspect]
     Route: 065

REACTIONS (3)
  - ABDOMINAL DISTENSION [None]
  - FATIGUE [None]
  - NAUSEA [None]
